FAERS Safety Report 14199626 (Version 1)
Quarter: 2017Q4

REPORT INFORMATION
  Report Type: Spontaneous
  Country: BR (occurrence: BR)
  Receive Date: 20171117
  Receipt Date: 20171117
  Transmission Date: 20180321
  Serious: Yes (Death, Hospitalization)
  Sender: FDA-Public Use
  Company Number: BR-VISTAPHARM, INC.-VER201711-001075

PATIENT
  Age: 4 Month
  Sex: Male

DRUGS (3)
  1. PREDNISOLONE. [Suspect]
     Active Substance: PREDNISOLONE
     Indication: MILIARIA
     Route: 048
  2. POTASSIUM PERMANGANATE [Concomitant]
     Active Substance: POTASSIUM PERMANGANATE
     Indication: MILIARIA
     Route: 061
  3. BETAMETHASONE. [Suspect]
     Active Substance: BETAMETHASONE
     Indication: MILIARIA
     Route: 030

REACTIONS (6)
  - Acarodermatitis [Recovering/Resolving]
  - Cardiac arrest [Fatal]
  - Drug ineffective for unapproved indication [Unknown]
  - Septic shock [Not Recovered/Not Resolved]
  - Infection [Unknown]
  - Drug administration error [Unknown]
